FAERS Safety Report 5554948-5 (Version None)
Quarter: 2007Q4

REPORT INFORMATION
  Report Type: 
  Country: None (occurrence: None)
  Receive Date: 20071213
  Receipt Date: 20071211
  Transmission Date: 20080405
  Serious: Yes (Death)
  Sender: FDA-Public Use
  Company Number: FR-ASTRAZENECA-2007CG01760

PATIENT
  Age: 32543 Day
  Sex: Male

DRUGS (7)
  1. MOPRAL [Suspect]
     Route: 048
  2. ASPEGIC 1000 [Suspect]
     Route: 048
  3. NITRODERM [Suspect]
     Route: 062
  4. BURINEX [Suspect]
     Route: 048
  5. POTASSIUM CHLORIDE [Suspect]
     Route: 048
  6. IKOREL [Suspect]
     Route: 048
  7. ELISOR [Suspect]
     Route: 048

REACTIONS (1)
  - SUBDURAL HAEMATOMA [None]
